FAERS Safety Report 9714356 (Version 2)
Quarter: 2013Q4

REPORT INFORMATION
  Report Type: Spontaneous
  Country: BR (occurrence: BR)
  Receive Date: 20131126
  Receipt Date: 20131218
  Transmission Date: 20140711
  Serious: Yes (Death, Hospitalization, Disabling, Other)
  Sender: FDA-Public Use
  Company Number: BR-PFIZER INC-2013335889

PATIENT
  Age: 89 Year
  Sex: Female

DRUGS (3)
  1. ATENOLOL [Suspect]
     Indication: BLOOD PRESSURE
     Dosage: 50 MG, UNK
     Route: 048
     Dates: end: 201309
  2. CARDIZEM [Concomitant]
     Dosage: UNK
     Route: 065
  3. AMANTADINE [Concomitant]
     Dosage: UNK
     Route: 065

REACTIONS (6)
  - Death [Fatal]
  - Cerebrovascular accident [Recovered/Resolved]
  - Cerebrovascular accident [Recovered/Resolved with Sequelae]
  - Abasia [Not Recovered/Not Resolved]
  - Coronary artery occlusion [Recovered/Resolved]
  - Dyspnoea [Not Recovered/Not Resolved]
